FAERS Safety Report 9520507 (Version 1)
Quarter: 2013Q3

REPORT INFORMATION
  Report Type: Spontaneous
  Country: CN (occurrence: CN)
  Receive Date: 20130913
  Receipt Date: 20130913
  Transmission Date: 20140515
  Serious: Yes (Other)
  Sender: FDA-Public Use
  Company Number: CN-ROCHE-1272880

PATIENT
  Sex: Female
  Weight: 58 kg

DRUGS (2)
  1. HERCEPTIN [Suspect]
     Indication: BREAST CANCER
     Route: 042
     Dates: start: 20120301, end: 20120301
  2. DOCETAXEL [Suspect]
     Indication: BREAST CANCER
     Route: 042
     Dates: start: 20120301, end: 20120301

REACTIONS (1)
  - Bone marrow failure [Recovered/Resolved]
